FAERS Safety Report 7678429-8 (Version None)
Quarter: 2011Q3

REPORT INFORMATION
  Report Type: 
  Country: None (occurrence: None)
  Receive Date: 20110811
  Receipt Date: 20110727
  Transmission Date: 20111222
  Serious: Yes (Other)
  Sender: FDA-Public Use
  Company Number: US-BAYER-2011-069288

PATIENT
  Sex: Male
  Weight: 60.771 kg

DRUGS (9)
  1. RENAGEL [Concomitant]
  2. GADOLINIUM IN UNSPECIFIED DRUG [Suspect]
     Indication: NUCLEAR MAGNETIC RESONANCE IMAGING
     Dosage: UNK
     Dates: start: 20060301, end: 20080301
  3. GADOLINIUM IN UNSPECIFIED DRUG [Suspect]
     Dosage: UNK
     Dates: start: 20060130, end: 20060130
  4. GADOLINIUM IN UNSPECIFIED DRUG [Suspect]
     Dosage: UNK
     Dates: start: 20060329, end: 20060329
  5. DIOVAN [Concomitant]
  6. LOSARTAN POTASSIUM [Concomitant]
  7. METOPROLOL TARTRATE [Concomitant]
  8. EPOGEN [Concomitant]
  9. HECTOROL [Concomitant]

REACTIONS (1)
  - NEPHROGENIC SYSTEMIC FIBROSIS [None]
